FAERS Safety Report 21454856 (Version 4)
Quarter: 2023Q2

REPORT INFORMATION
  Report Type: Report from Study
  Country: US (occurrence: US)
  Receive Date: 20221014
  Receipt Date: 20230403
  Transmission Date: 20230721
  Serious: Yes (Hospitalization)
  Sender: FDA-Public Use
  Company Number: US-BIOGEN-2022BI01160799

PATIENT
  Age: 64 Year
  Sex: Female

DRUGS (16)
  1. AVONEX [Suspect]
     Active Substance: INTERFERON BETA-1A
     Indication: Multiple sclerosis
     Route: 050
  2. AVONEX [Suspect]
     Active Substance: INTERFERON BETA-1A
  3. AVONEX [Suspect]
     Active Substance: INTERFERON BETA-1A
  4. AVONEX [Suspect]
     Active Substance: INTERFERON BETA-1A
  5. AVONEX [Suspect]
     Active Substance: INTERFERON BETA-1A
  6. AVONEX [Suspect]
     Active Substance: INTERFERON BETA-1A
  7. AVONEX [Suspect]
     Active Substance: INTERFERON BETA-1A
  8. AVONEX [Suspect]
     Active Substance: INTERFERON BETA-1A
  9. AVONEX [Suspect]
     Active Substance: INTERFERON BETA-1A
  10. AVONEX [Suspect]
     Active Substance: INTERFERON BETA-1A
  11. AVONEX [Suspect]
     Active Substance: INTERFERON BETA-1A
  12. AVONEX [Suspect]
     Active Substance: INTERFERON BETA-1A
  13. AVONEX [Suspect]
     Active Substance: INTERFERON BETA-1A
  14. COVID-19 VACCINE NOS [Suspect]
     Active Substance: COVID-19 VACCINE NOS
     Indication: Product used for unknown indication
     Route: 050
  15. ESTROVEN MULTI-SYMPTOM [Concomitant]
     Indication: Product used for unknown indication
     Route: 050
  16. D-MANNOSE [Concomitant]
     Indication: Product used for unknown indication
     Route: 050

REACTIONS (11)
  - Investigation abnormal [Unknown]
  - Mobility decreased [Unknown]
  - Asthenia [Unknown]
  - Product use issue [Unknown]
  - Haemorrhoids [Unknown]
  - Oedema peripheral [Unknown]
  - Gait disturbance [Unknown]
  - Weight decreased [Unknown]
  - Immunisation reaction [Unknown]
  - Viral infection [Unknown]
  - Pain [Unknown]

NARRATIVE: CASE EVENT DATE: 20220901
